FAERS Safety Report 4808389-6 (Version None)
Quarter: 2005Q4

REPORT INFORMATION
  Report Type: 
  Country: None (occurrence: None)
  Receive Date: 20051021
  Receipt Date: 20030905
  Transmission Date: 20060501
  Serious: Yes (Hospitalization)
  Sender: FDA-Public Use
  Company Number: EWC030936141

PATIENT
  Age: 55 Year
  Sex: Male

DRUGS (7)
  1. ZYPREXA [Suspect]
     Indication: SCHIZOPHRENIA
     Dosage: 25 MG/DAY
     Dates: end: 20021001
  2. VENTOLIN [Concomitant]
  3. ACETAMINOPHEN [Concomitant]
  4. NOZINAN (LEVOMEPROMAZINE) [Concomitant]
  5. TRILAFON [Concomitant]
  6. FENEMAL (PHENOBARBITAL) [Concomitant]
  7. MUCOMYST [Concomitant]

REACTIONS (4)
  - LEUKOPENIA [None]
  - POSTOPERATIVE INFECTION [None]
  - PYREXIA [None]
  - TOOTH EXTRACTION [None]
